FAERS Safety Report 14409972 (Version 1)
Quarter: 2018Q1

REPORT INFORMATION
  Report Type: Spontaneous
  Country: US (occurrence: US)
  Receive Date: 20180119
  Receipt Date: 20180119
  Transmission Date: 20180509
  Serious: Yes (Hospitalization)
  Sender: FDA-Public Use
  Company Number: US-ASTRAZENECA-2018SE05861

PATIENT
  Sex: Female

DRUGS (1)
  1. IMFINZI [Suspect]
     Active Substance: DURVALUMAB
     Indication: LUNG NEOPLASM MALIGNANT
     Route: 041

REACTIONS (5)
  - Product use in unapproved indication [Unknown]
  - Gastritis [Unknown]
  - Myalgia [Unknown]
  - Infection [Unknown]
  - Off label use [Not Recovered/Not Resolved]
